FAERS Safety Report 6028763-2 (Version None)
Quarter: 2009Q1

REPORT INFORMATION
  Report Type: 
  Country: None (occurrence: None)
  Receive Date: 20090106
  Receipt Date: 20090106
  Transmission Date: 20090719
  Serious: Yes (Other)
  Sender: FDA-Public Use
  Company Number: A0762342A

PATIENT
  Age: 79 Year
  Sex: Female

DRUGS (2)
  1. CARVEDILOL [Suspect]
     Route: 065
     Dates: start: 20020101
  2. NO CONCURRENT MEDICATION [Concomitant]

REACTIONS (2)
  - DEMENTIA [None]
  - HALLUCINATION [None]
